FAERS Safety Report 13328896 (Version 2)
Quarter: 2017Q1

REPORT INFORMATION
  Report Type: Report from Study
  Country: US (occurrence: US)
  Receive Date: 20170313
  Receipt Date: 20170320
  Transmission Date: 20170428
  Serious: Yes (Death, Hospitalization, Other)
  Sender: FDA-Public Use
  Company Number: US-GILEAD-2017-0261502

PATIENT
  Age: 19 Year
  Sex: Female
  Weight: 72 kg

DRUGS (1)
  1. AMBRISENTAN [Suspect]
     Active Substance: AMBRISENTAN
     Indication: PRODUCT USED FOR UNKNOWN INDICATION
     Dosage: 5 MG, QD
     Route: 065
     Dates: start: 20161202

REACTIONS (4)
  - Colitis [Fatal]
  - Renal failure [Fatal]
  - Pulmonary embolism [Fatal]
  - Sepsis [Fatal]
